FAERS Safety Report 16690910 (Version 4)
Quarter: 2022Q4

REPORT INFORMATION
  Report Type: Spontaneous
  Country: CA (occurrence: None)
  Receive Date: 20190812
  Receipt Date: 20221219
  Transmission Date: 20230112
  Serious: Yes (Other)
  Sender: FDA-Public Use
  Company Number: CA-ROCHE-2369617

PATIENT
  Age: 7 Year
  Sex: Female
  Weight: 28 kg

DRUGS (28)
  1. ACTEMRA [Suspect]
     Active Substance: TOCILIZUMAB
     Indication: Juvenile idiopathic arthritis
     Dosage: THERAPY DURATION-55 DAYS
     Route: 065
  2. ACTEMRA [Suspect]
     Active Substance: TOCILIZUMAB
     Route: 065
  3. ACTEMRA [Suspect]
     Active Substance: TOCILIZUMAB
     Route: 065
  4. ASPIRIN [Suspect]
     Active Substance: ASPIRIN
     Indication: Juvenile idiopathic arthritis
     Route: 065
  5. CELECOXIB [Suspect]
     Active Substance: CELECOXIB
     Indication: Juvenile idiopathic arthritis
     Route: 065
  6. CYCLOSPORINE [Suspect]
     Active Substance: CYCLOSPORINE
     Indication: Juvenile idiopathic arthritis
     Dosage: THERAPY DURATION- 349 DAYS
     Route: 065
  7. ENBREL [Suspect]
     Active Substance: ETANERCEPT
     Indication: Juvenile idiopathic arthritis
     Dosage: THERAPY DURATION-141 DAYS
     Route: 065
  8. KINERET [Suspect]
     Active Substance: ANAKINRA
     Indication: Juvenile idiopathic arthritis
     Dosage: THERAPY DURATION- 44 DAYS
     Route: 065
  9. KINERET [Suspect]
     Active Substance: ANAKINRA
     Dosage: THERAPY DURATION- 15 DAYS
     Route: 065
  10. KINERET [Suspect]
     Active Substance: ANAKINRA
     Dosage: THERAPY DURATION- 62 DAYS
     Route: 065
  11. PREDNISONE [Suspect]
     Active Substance: PREDNISONE
     Indication: Still^s disease
     Dosage: THERAPY DURATION- 639 DAYS
     Route: 065
  12. PREDNISONE [Suspect]
     Active Substance: PREDNISONE
     Dosage: THERAPY DURATION- 639 DAYS
     Route: 065
  13. REMICADE [Suspect]
     Active Substance: INFLIXIMAB
     Indication: Juvenile idiopathic arthritis
     Dosage: THERAPY DURATION- 13 DAYS
     Route: 065
  14. REMICADE [Suspect]
     Active Substance: INFLIXIMAB
     Route: 042
  15. TINZAPARIN [Suspect]
     Active Substance: TINZAPARIN
     Indication: Product used for unknown indication
     Dosage: THERAPY DURATION- 359 DAYS
     Route: 065
  16. INDOMETHACIN [Suspect]
     Active Substance: INDOMETHACIN
     Indication: Still^s disease
     Route: 065
  17. INDOMETHACIN [Suspect]
     Active Substance: INDOMETHACIN
     Indication: Juvenile idiopathic arthritis
  18. METHOTREXATE [Suspect]
     Active Substance: METHOTREXATE
     Indication: Juvenile idiopathic arthritis
     Route: 065
  19. METHOTREXATE [Suspect]
     Active Substance: METHOTREXATE
     Route: 065
  20. METHOTREXATE [Suspect]
     Active Substance: METHOTREXATE
     Route: 065
  21. METHOTREXATE [Suspect]
     Active Substance: METHOTREXATE
     Route: 065
  22. HYDROCORTISONE [Suspect]
     Active Substance: HYDROCORTISONE
     Indication: Juvenile idiopathic arthritis
     Route: 065
  23. ANAKINRA [Suspect]
     Active Substance: ANAKINRA
     Indication: Juvenile idiopathic arthritis
     Route: 065
  24. ANAKINRA [Suspect]
     Active Substance: ANAKINRA
     Route: 065
  25. ANAKINRA [Suspect]
     Active Substance: ANAKINRA
     Route: 065
  26. ASPIRIN [Concomitant]
     Active Substance: ASPIRIN
     Indication: Juvenile idiopathic arthritis
     Route: 065
  27. CELECOXIB [Concomitant]
     Active Substance: CELECOXIB
     Indication: Juvenile idiopathic arthritis
     Route: 065
  28. PREDNISONE [Concomitant]
     Active Substance: PREDNISONE
     Indication: Still^s disease
     Route: 065

REACTIONS (3)
  - Adrenal suppression [Unknown]
  - Antinuclear antibody positive [Unknown]
  - Psoriasis [Unknown]
